FAERS Safety Report 18022706 (Version 4)
Quarter: 2020Q4

REPORT INFORMATION
  Report Type: Spontaneous
  Country: FR (occurrence: FR)
  Receive Date: 20200714
  Receipt Date: 20201020
  Transmission Date: 20210113
  Serious: Yes (Other)
  Sender: FDA-Public Use
  Company Number: FR-PFIZER INC-2020267892

PATIENT
  Age: 61 Year

DRUGS (2)
  1. PREDNISONE. [Suspect]
     Active Substance: PREDNISONE
     Indication: ORBITAL MYOSITIS
     Dosage: UNK (20 TO 70 MG/DAY, GIVEN FOR 6 MONTHS)
  2. METHYLPREDNISOLONE SODIUM SUCCINATE. [Suspect]
     Active Substance: METHYLPREDNISOLONE SODIUM SUCCINATE
     Indication: ORBITAL MYOSITIS
     Dosage: UNK (5 BOLUS OF 3 DAYS, 750 TO 1000 MG/DAY, GIVEN FOR 6 MONTHS)
     Route: 040

REACTIONS (3)
  - Cranial nerve disorder [Unknown]
  - Blindness [Unknown]
  - Condition aggravated [Unknown]
